FAERS Safety Report 8111717-X (Version None)
Quarter: 2012Q1

REPORT INFORMATION
  Report Type: 
  Country: None (occurrence: None)
  Receive Date: 20120131
  Receipt Date: 20120117
  Transmission Date: 20120608
  Serious: Yes (Death, Other)
  Sender: FDA-Public Use
  Company Number: TPA2012A00357

PATIENT
  Sex: Female

DRUGS (3)
  1. ACTOS [Suspect]
     Indication: DIABETES MELLITUS
     Dosage: ^PROLONGED^ DURATION
  2. METFORMIN HCL [Suspect]
     Indication: TYPE 2 DIABETES MELLITUS
  3. UNKNOWN DPP-4 INHIBITOR (DIPEPTIDYL PEPTIDASE 4 (DPP-4) INHIBITORS) [Concomitant]

REACTIONS (2)
  - BLADDER CANCER [None]
  - RENAL IMPAIRMENT [None]
